FAERS Safety Report 13878447 (Version 1)
Quarter: 2017Q3

REPORT INFORMATION
  Report Type: Spontaneous
  Country: US (occurrence: US)
  Receive Date: 20170817
  Receipt Date: 20170817
  Transmission Date: 20171127
  Serious: No
  Sender: FDA-Public Use
  Company Number: US-ROCHE-1043148

PATIENT
  Age: 47 Year
  Sex: Female

DRUGS (7)
  1. COPEGUS [Suspect]
     Active Substance: RIBAVIRIN
     Indication: HEPATITIS C
     Route: 048
     Dates: start: 20120115
  2. VICTRELIS [Suspect]
     Active Substance: BOCEPREVIR
     Indication: HEPATITIS C
     Route: 065
  3. SEROQUEL [Concomitant]
     Active Substance: QUETIAPINE FUMARATE
  4. CITALOPRAM [Concomitant]
     Active Substance: CITALOPRAM HYDROBROMIDE
  5. LEVEMIR [Concomitant]
     Active Substance: INSULIN DETEMIR
  6. PEGASYS [Suspect]
     Active Substance: PEGINTERFERON ALFA-2A
     Indication: HEPATITIS C
     Route: 058
     Dates: start: 20120115
  7. NOVOLOG [Concomitant]
     Active Substance: INSULIN ASPART

REACTIONS (6)
  - Malaise [Unknown]
  - Lip swelling [Recovering/Resolving]
  - Oropharyngeal pain [Unknown]
  - Swollen tongue [Recovered/Resolved]
  - Injection site mass [Unknown]
  - Rash [Recovered/Resolved]

NARRATIVE: CASE EVENT DATE: 20120227
